FAERS Safety Report 6011181 (Version 1)
Quarter: 2020Q3

REPORT INFORMATION
  Report Type: Report from Study
  Country: US (occurrence: US)
  Receive Date: 20060324
  Receipt Date: 20060324
  Transmission Date: 20201104
  Serious: Yes (Hospitalization, Other)
  Sender: FDA-Public Use
  Company Number: US-JNJFOC-20051203576

PATIENT
  Age: 53 Year
  Sex: Male
  Weight: 68.04 kg

DRUGS (4)
  1. REGLAN [Concomitant]
     Active Substance: METOCLOPRAMIDE HYDROCHLORIDE
     Route: 048
  2. CISAPRIDE [Suspect]
     Active Substance: CISAPRIDE
     Route: 048
  3. METFORMIN [Concomitant]
     Active Substance: METFORMIN HYDROCHLORIDE
     Route: 048
  4. CISAPRIDE [Suspect]
     Active Substance: CISAPRIDE
     Dosage: TEMPORARILY INTERRUPTED
     Route: 048

REACTIONS (2)
  - Impaired gastric emptying [Recovered/Resolved]
  - Therapeutic response decreased [Recovered/Resolved]

NARRATIVE: CASE EVENT DATE: 20050725
